FAERS Safety Report 6820140-7 (Version None)
Quarter: 2010Q3

REPORT INFORMATION
  Report Type: 
  Country: None (occurrence: None)
  Receive Date: 20100707
  Receipt Date: 20100630
  Transmission Date: 20110219
  Serious: Yes (Other)
  Sender: FDA-Public Use
  Company Number: US-MERCK-1007USA00274

PATIENT
  Age: 60 Year
  Sex: Female
  Weight: 50 kg

DRUGS (2)
  1. FOSAMAX [Suspect]
     Indication: OSTEOPOROSIS
     Route: 048
     Dates: start: 20080105, end: 20090215
  2. FOSAMAX [Suspect]
     Indication: OSTEOPENIA
     Route: 048
     Dates: start: 20080105, end: 20090215

REACTIONS (9)
  - ABDOMINAL DISTENSION [None]
  - BONE DENSITY DECREASED [None]
  - DIARRHOEA [None]
  - DYSPEPSIA [None]
  - DYSPHAGIA [None]
  - ERUCTATION [None]
  - FLATULENCE [None]
  - GINGIVAL PAIN [None]
  - NO THERAPEUTIC RESPONSE [None]
